FAERS Safety Report 7897182-6 (Version None)
Quarter: 2011Q4

REPORT INFORMATION
  Report Type: 
  Country: None (occurrence: None)
  Receive Date: 20111107
  Receipt Date: 20111024
  Transmission Date: 20120403
  Serious: Yes (Other)
  Sender: FDA-Public Use
  Company Number: CA-ELI_LILLY_AND_COMPANY-CA201110006128

PATIENT
  Sex: Male

DRUGS (7)
  1. ZYPREXA [Suspect]
     Dosage: 2.5 MG, UNK
  2. ZOPICLONE [Concomitant]
  3. CLONAZEPAM [Concomitant]
  4. SEROQUEL [Concomitant]
  5. ZYPREXA [Suspect]
     Dosage: 12.5 MG, EACH EVENING
  6. ZYPREXA [Suspect]
     Dosage: 10 MG, UNK
     Dates: start: 20000526
  7. MIRTAZAPINE [Concomitant]

REACTIONS (4)
  - BLINDNESS [None]
  - PANCREATITIS [None]
  - TYPE 1 DIABETES MELLITUS [None]
  - CEREBROVASCULAR ACCIDENT [None]
